FAERS Safety Report 4808626-8 (Version None)
Quarter: 2005Q4

REPORT INFORMATION
  Report Type: 
  Country: None (occurrence: None)
  Receive Date: 20051021
  Receipt Date: 20040302
  Transmission Date: 20060501
  Serious: No
  Sender: FDA-Public Use
  Company Number: FR_040303684

PATIENT
  Age: 50 Year
  Sex: Female

DRUGS (4)
  1. ZYPREXA [Suspect]
     Dosage: 5 MG DAY
     Dates: start: 20010101
  2. DEPAKOTE (VALPROMIDE) [Concomitant]
  3. NEXEN (NIMESULIDE) [Concomitant]
  4. LORAZEPAM [Concomitant]

REACTIONS (3)
  - HYPERCHOLESTEROLAEMIA [None]
  - HYPERTRIGLYCERIDAEMIA [None]
  - NEUTROPENIA [None]
